FAERS Safety Report 6534591-1 (Version None)
Quarter: 2010Q1

REPORT INFORMATION
  Report Type: 
  Country: None (occurrence: None)
  Receive Date: 20100112
  Receipt Date: 20100108
  Transmission Date: 20100710
  Serious: Yes (Hospitalization)
  Sender: FDA-Public Use
  Company Number: A0838516A

PATIENT
  Age: 49 Year
  Sex: Female

DRUGS (8)
  1. PAXIL [Suspect]
     Dosage: 1TAB TWICE PER DAY
     Route: 048
     Dates: start: 20000101
  2. ROBITUSSIN DM [Concomitant]
  3. PREDNISONE [Concomitant]
  4. PHENOBARBITAL TAB [Concomitant]
  5. LAMOTRIGINE [Concomitant]
  6. TOPAMAX [Concomitant]
  7. ASPIRIN [Concomitant]
  8. INSULIN [Concomitant]

REACTIONS (2)
  - CHRONIC OBSTRUCTIVE PULMONARY DISEASE [None]
  - CROUP INFECTIOUS [None]
